FAERS Safety Report 5301299-X (Version None)
Quarter: 2007Q2

REPORT INFORMATION
  Report Type: 
  Country: None (occurrence: None)
  Receive Date: 20070418
  Receipt Date: 20070409
  Transmission Date: 20071010
  Serious: Yes (Death)
  Sender: FDA-Public Use
  Company Number: KR-ABBOTT-07P-090-0362124-00

PATIENT
  Age: 37 Year
  Sex: Female

DRUGS (1)
  1. SEVORANE LIQUID FOR INHALATION [Suspect]
     Indication: CAESAREAN SECTION

REACTIONS (1)
  - ANAESTHETIC COMPLICATION [None]
